FAERS Safety Report 4422092-6 (Version None)
Quarter: 2004Q3

REPORT INFORMATION
  Report Type: 
  Country: None (occurrence: None)
  Receive Date: 20040805
  Receipt Date: 20040720
  Transmission Date: 20050211
  Serious: Yes (Hospitalization)
  Sender: FDA-Public Use
  Company Number: DSA_60428-2004

PATIENT
  Age: 4 Year
  Sex: Female
  Weight: 15.4223 kg

DRUGS (3)
  1. DIASTAT [Suspect]
     Indication: CONVULSION
     Dosage: 10 MG PRN RC
  2. KLONOPIN [Concomitant]
  3. LAMICTAL [Concomitant]

REACTIONS (4)
  - CONVULSION [None]
  - OXYGEN SATURATION DECREASED [None]
  - RESPIRATORY RATE DECREASED [None]
  - STATUS EPILEPTICUS [None]
